FAERS Safety Report 5441534-0 (Version None)
Quarter: 2007Q3

REPORT INFORMATION
  Report Type: 
  Country: None (occurrence: None)
  Receive Date: 20070830
  Receipt Date: 20070830
  Transmission Date: 20080115
  Serious: No
  Sender: FDA-Public Use
  Company Number: None

PATIENT
  Sex: Male
  Weight: 130.1823 kg

DRUGS (4)
  1. WELCHOL [Suspect]
     Dosage: 625 MG 2 DAY PO
     Route: 048
  2. HYZAAR [Concomitant]
  3. NIFEDIPINE [Concomitant]
  4. ZETIA [Concomitant]

REACTIONS (1)
  - RASH MACULO-PAPULAR [None]
